FAERS Safety Report 15633695 (Version 3)
Quarter: 2018Q4

REPORT INFORMATION
  Report Type: Spontaneous
  Country: US (occurrence: US)
  Receive Date: 20181119
  Receipt Date: 20181127
  Transmission Date: 20190205
  Serious: Yes (Hospitalization, Other)
  Sender: FDA-Public Use
  Company Number: US-SA-2018SA315877

PATIENT
  Age: 65 Year
  Sex: Female

DRUGS (4)
  1. LANTUS [Suspect]
     Active Substance: INSULIN GLARGINE
     Indication: TYPE 2 DIABETES MELLITUS
     Dosage: 84 U, QD
     Dates: start: 2000
  2. INSULIN LISPRO [Suspect]
     Active Substance: INSULIN LISPRO
     Route: 065
  3. LANTUS [Suspect]
     Active Substance: INSULIN GLARGINE
     Dosage: 43 IU
     Route: 058
  4. NOVOLOG [Suspect]
     Active Substance: INSULIN ASPART

REACTIONS (9)
  - Walking aid user [Unknown]
  - Cholelithiasis [Unknown]
  - Pancreatitis [Unknown]
  - Hospitalisation [Unknown]
  - Drug hypersensitivity [Unknown]
  - Injection site bruising [Unknown]
  - Hepatitis B [Unknown]
  - Drug ineffective [Unknown]
  - Injection site indentation [Unknown]

NARRATIVE: CASE EVENT DATE: 201411
